FAERS Safety Report 10246655 (Version 1)
Quarter: 2014Q2

REPORT INFORMATION
  Report Type: Spontaneous
  Country: US (occurrence: US)
  Receive Date: 20140619
  Receipt Date: 20140619
  Transmission Date: 20141212
  Serious: No
  Sender: FDA-Public Use
  Company Number: US-SHIRE-US201403101

PATIENT
  Age: 9 Year
  Sex: Female

DRUGS (1)
  1. PENTASA [Suspect]
     Indication: CROHN^S DISEASE
     Dosage: 250 MG, UNKNOWN
     Route: 048
     Dates: start: 2014

REACTIONS (2)
  - Medication residue present [Not Recovered/Not Resolved]
  - Off label use [Unknown]
